FAERS Safety Report 21212456 (Version 1)
Quarter: 2022Q3

REPORT INFORMATION
  Report Type: Spontaneous
  Country: US (occurrence: None)
  Receive Date: 20220812
  Receipt Date: 20220812
  Transmission Date: 20221027
  Serious: Yes (Other)
  Sender: FDA-Public Use
  Company Number: None

PATIENT
  Age: 39 Year
  Sex: Male
  Weight: 85.05 kg

DRUGS (2)
  1. VICTOZA [Suspect]
     Active Substance: LIRAGLUTIDE
     Indication: Hepatic steatosis
     Route: 058
  2. VICTOZA [Suspect]
     Active Substance: LIRAGLUTIDE
     Indication: Hypertriglyceridaemia

REACTIONS (5)
  - Oropharyngeal pain [None]
  - Dysphagia [None]
  - Insomnia [None]
  - Feeling jittery [None]
  - COVID-19 [None]

NARRATIVE: CASE EVENT DATE: 20220810
